FAERS Safety Report 6286832-6 (Version None)
Quarter: 2009Q3

REPORT INFORMATION
  Report Type: 
  Country: None (occurrence: None)
  Receive Date: 20090728
  Receipt Date: 20090717
  Transmission Date: 20100115
  Serious: Yes (Other)
  Sender: FDA-Public Use
  Company Number: GB-JNJFOC-20090706067

PATIENT
  Sex: Female
  Weight: 53 kg

DRUGS (6)
  1. REMICADE [Suspect]
     Indication: SPONDYLOARTHROPATHY
     Route: 042
  2. MARVELON [Concomitant]
  3. METHOTREXATE [Concomitant]
  4. ACETAMINOPHEN W/ CODEINE [Concomitant]
  5. FOLIC ACID [Concomitant]
  6. NAPROXEN [Concomitant]

REACTIONS (1)
  - OESOPHAGEAL ULCER [None]
